FAERS Safety Report 14656933 (Version 1)
Quarter: 2018Q1

REPORT INFORMATION
  Report Type: Spontaneous
  Country: US (occurrence: US)
  Receive Date: 20180319
  Receipt Date: 20180319
  Transmission Date: 20180509
  Serious: No
  Sender: FDA-Public Use
  Company Number: US-SA-2017SA164745

PATIENT
  Age: 8 Year
  Sex: Male

DRUGS (1)
  1. NASACORT ALLERGY 24HR [Suspect]
     Active Substance: TRIAMCINOLONE ACETONIDE
     Indication: MULTIPLE ALLERGIES
     Dosage: SPRAY
     Route: 065
     Dates: start: 20170817, end: 20170827

REACTIONS (3)
  - Pyrexia [Unknown]
  - Hypersensitivity [Unknown]
  - Chills [Unknown]
